FAERS Safety Report 7990744-7 (Version None)
Quarter: 2011Q4

REPORT INFORMATION
  Report Type: 
  Country: None (occurrence: None)
  Receive Date: 20111219
  Receipt Date: 20111219
  Transmission Date: 20120403
  Serious: Yes (Hospitalization)
  Sender: FDA-Public Use
  Company Number: None

PATIENT
  Age: 67 Year
  Sex: Female

DRUGS (1)
  1. SUTENT [Suspect]
     Dosage: 37.5MG
     Route: 048
     Dates: start: 20110913, end: 20111130

REACTIONS (5)
  - FATIGUE [None]
  - DYSPNOEA [None]
  - HYPOPHAGIA [None]
  - STOMATITIS [None]
  - PAIN [None]
